FAERS Safety Report 8333426-4 (Version None)
Quarter: 2012Q2

REPORT INFORMATION
  Report Type: 
  Country: None (occurrence: None)
  Receive Date: 20120503
  Receipt Date: 20120427
  Transmission Date: 20120825
  Serious: Yes (Other)
  Sender: FDA-Public Use
  Company Number: US-SANOFI-AVENTIS-2012SA030206

PATIENT
  Sex: Male

DRUGS (1)
  1. ALLEGRA [Suspect]

REACTIONS (2)
  - GASTROINTESTINAL DISORDER [None]
  - BACK PAIN [None]
